FAERS Safety Report 8289591-0 (Version None)
Quarter: 2012Q2

REPORT INFORMATION
  Report Type: 
  Country: None (occurrence: None)
  Receive Date: 20120417
  Receipt Date: 20120409
  Transmission Date: 20120825
  Serious: Yes (Hospitalization, Other)
  Sender: FDA-Public Use
  Company Number: US-BAYER-2012-017551

PATIENT
  Age: 20 Year
  Sex: Female
  Weight: 56.236 kg

DRUGS (2)
  1. LOESTRIN FE 1/20 [Concomitant]
     Dosage: UNK
     Dates: start: 20110301, end: 20110501
  2. SAFYRAL [Suspect]
     Indication: CONTRACEPTION
     Dosage: UNK
     Dates: start: 20110501, end: 20110822

REACTIONS (6)
  - CEREBRAL VENOUS THROMBOSIS [None]
  - DYSARTHRIA [None]
  - HEADACHE [None]
  - MOTOR DYSFUNCTION [None]
  - TRANSIENT ISCHAEMIC ATTACK [None]
  - APHASIA [None]
